FAERS Safety Report 11109346 (Version 2)
Quarter: 2015Q2

REPORT INFORMATION
  Report Type: Spontaneous
  Country: US (occurrence: None)
  Receive Date: 20150511
  Receipt Date: 20150605
  Transmission Date: 20150821
  Serious: Yes (Life-Threatening, Hospitalization, Other)
  Sender: FDA-Public Use
  Company Number: ADR-2015-00920

PATIENT
  Age: 49 Year
  Sex: Female

DRUGS (3)
  1. BACLOFEN ORAL (UNKNOWN) [Suspect]
     Active Substance: BACLOFEN
  2. MORPHINE INTRATHECAL UNK [Suspect]
     Active Substance: MORPHINE
  3. BACLOFEN INTRATHECAL UNK [Suspect]
     Active Substance: BACLOFEN
     Indication: PAIN

REACTIONS (6)
  - Pain [None]
  - Pneumonia [None]
  - Septic shock [None]
  - Sepsis [None]
  - Respiratory distress [None]
  - Coma [None]
